FAERS Safety Report 5641919-3 (Version None)
Quarter: 2008Q1

REPORT INFORMATION
  Report Type: 
  Country: None (occurrence: None)
  Receive Date: 20080131
  Receipt Date: 20071211
  Transmission Date: 20080703
  Serious: No
  Sender: FDA-Public Use
  Company Number: 163-21880-07101001

PATIENT
  Age: 66 Year
  Sex: Male

DRUGS (6)
  1. REVLIMID [Suspect]
     Indication: MULTIPLE MYELOMA
     Dosage: 10 MG, DAILY FOR 21 DAYS, ORAL
     Route: 048
     Dates: start: 20070725
  2. ALEVE (CAPLET) [Suspect]
     Indication: DRUG USE FOR UNKNOWN INDICATION
     Dosage: OCCASIONALLY, UNKNOWN
     Route: 048
  3. DEXAMETHASONE [Concomitant]
  4. COUMADIN [Concomitant]
  5. ZOLPIDEM [Concomitant]
  6. PREDNISONE TAB [Concomitant]

REACTIONS (6)
  - ARTHRALGIA [None]
  - CATARACT [None]
  - FLUSHING [None]
  - INSOMNIA [None]
  - VIRAL INFECTION [None]
  - VISION BLURRED [None]
